FAERS Safety Report 14684312 (Version 1)
Quarter: 2018Q1

REPORT INFORMATION
  Report Type: Spontaneous
  Country: AU (occurrence: AU)
  Receive Date: 20180327
  Receipt Date: 20180327
  Transmission Date: 20180509
  Serious: Yes (Death, Other)
  Sender: FDA-Public Use
  Company Number: AU-INCYTE CORPORATION-2018IN002642

PATIENT

DRUGS (2)
  1. JAKAVI [Suspect]
     Active Substance: RUXOLITINIB
     Indication: PRIMARY MYELOFIBROSIS
     Dosage: 5 MG, BID
     Route: 065
  2. JAKAVI [Suspect]
     Active Substance: RUXOLITINIB
     Dosage: 20 MG, BID
     Route: 065

REACTIONS (12)
  - Abdominal distension [Unknown]
  - Discomfort [Unknown]
  - Cytopenia [Unknown]
  - Bone lesion [Unknown]
  - Cryptococcosis [Unknown]
  - Splenomegaly [Unknown]
  - Endocarditis [Unknown]
  - Pneumonia cryptococcal [Unknown]
  - Meningitis cryptococcal [Unknown]
  - Streptococcal bacteraemia [Unknown]
  - Escherichia sepsis [Fatal]
  - Immunosuppression [Unknown]
